FAERS Safety Report 6686292-7 (Version None)
Quarter: 2010Q2

REPORT INFORMATION
  Report Type: 
  Country: None (occurrence: None)
  Receive Date: 20100419
  Receipt Date: 20100412
  Transmission Date: 20101027
  Serious: Yes (Other)
  Sender: FDA-Public Use
  Company Number: ES-PFIZER INC-2010046126

PATIENT
  Age: 75 Year
  Sex: Male

DRUGS (1)
  1. TOVIAZ [Suspect]
     Indication: INCONTINENCE
     Dosage: UNK

REACTIONS (2)
  - MACULAR OEDEMA [None]
  - VISION BLURRED [None]
